FAERS Safety Report 18876720 (Version 2)
Quarter: 2021Q2

REPORT INFORMATION
  Report Type: Spontaneous
  Country: US (occurrence: US)
  Receive Date: 20210210
  Receipt Date: 20210512
  Transmission Date: 20210717
  Serious: No
  Sender: FDA-Public Use
  Company Number: US-RIGEL PHARMACEUTICALS, INC.-2020FOS000659

PATIENT
  Age: 57 Year
  Sex: Female

DRUGS (14)
  1. VITAMIN B12 [Concomitant]
     Active Substance: CYANOCOBALAMIN
     Indication: PRODUCT USED FOR UNKNOWN INDICATION
     Dosage: UNK
  2. PROBIOTIC COMPLEX [Concomitant]
     Indication: PRODUCT USED FOR UNKNOWN INDICATION
  3. SELENIUM [Concomitant]
     Active Substance: SELENIUM
     Indication: PRODUCT USED FOR UNKNOWN INDICATION
  4. TAVALISSE [Suspect]
     Active Substance: FOSTAMATINIB
     Indication: IMMUNE THROMBOCYTOPENIA
     Dosage: 100 MG, BID
     Route: 048
     Dates: start: 20201114
  5. VITAMIN E NOS [Concomitant]
     Active Substance: .ALPHA.-TOCOPHEROL
     Indication: PRODUCT USED FOR UNKNOWN INDICATION
  6. ZINC. [Concomitant]
     Active Substance: ZINC
     Indication: PRODUCT USED FOR UNKNOWN INDICATION
  7. VITAMIN D3 [Concomitant]
     Active Substance: CHOLECALCIFEROL
     Indication: PRODUCT USED FOR UNKNOWN INDICATION
     Dosage: UNK
  8. GERM X [Concomitant]
     Indication: PRODUCT USED FOR UNKNOWN INDICATION
  9. VITAMIN C [Concomitant]
     Active Substance: ASCORBIC ACID
     Indication: PRODUCT USED FOR UNKNOWN INDICATION
  10. GLUTATHIONE [Concomitant]
     Active Substance: GLUTATHIONE
     Indication: PRODUCT USED FOR UNKNOWN INDICATION
     Dosage: UNK
  11. QUERCETIN [Concomitant]
     Active Substance: QUERCETIN
     Indication: PRODUCT USED FOR UNKNOWN INDICATION
  12. BROMELAIN [Concomitant]
     Active Substance: BROMELAINS
     Indication: PRODUCT USED FOR UNKNOWN INDICATION
     Dosage: UNK
  13. ARNICA MONTANA. [Concomitant]
     Active Substance: HOMEOPATHICS
     Indication: PRODUCT USED FOR UNKNOWN INDICATION
  14. COENZYME Q10 [Concomitant]
     Active Substance: DIETARY SUPPLEMENT\UBIDECARENONE
     Indication: PRODUCT USED FOR UNKNOWN INDICATION

REACTIONS (4)
  - Headache [Not Recovered/Not Resolved]
  - Increased tendency to bruise [Unknown]
  - Adverse event [Not Recovered/Not Resolved]
  - Gingival bleeding [Unknown]

NARRATIVE: CASE EVENT DATE: 20201211
